FAERS Safety Report 7724197-0 (Version None)
Quarter: 2011Q3

REPORT INFORMATION
  Report Type: 
  Country: None (occurrence: None)
  Receive Date: 20110901
  Receipt Date: 20110822
  Transmission Date: 20111222
  Serious: Yes (Other)
  Sender: FDA-Public Use
  Company Number: CHPA2011US11605

PATIENT
  Age: 86 Year
  Sex: Female

DRUGS (2)
  1. PREVACID 24 HR [Suspect]
     Indication: GASTROOESOPHAGEAL REFLUX DISEASE
     Dosage: 15 MG, QD
     Route: 048
  2. PLAVIX [Concomitant]
     Indication: STENT PLACEMENT
     Dosage: 75 MG, QD
     Dates: start: 20081201

REACTIONS (4)
  - ARTHRITIS [None]
  - DRUG DEPENDENCE [None]
  - OFF LABEL USE [None]
  - INCORRECT DRUG ADMINISTRATION DURATION [None]
